FAERS Safety Report 18637558 (Version 2)
Quarter: 2021Q1

REPORT INFORMATION
  Report Type: Spontaneous
  Country: PL (occurrence: PL)
  Receive Date: 20201218
  Receipt Date: 20210111
  Transmission Date: 20210419
  Serious: Yes (Other)
  Sender: FDA-Public Use
  Company Number: PL-MYLANLABS-2020M1103102

PATIENT
  Age: 77 Year
  Sex: Female

DRUGS (6)
  1. KALETRA [Suspect]
     Active Substance: LOPINAVIR\RITONAVIR
     Indication: COVID-19
     Dosage: UNK
     Route: 065
  2. AMOXICILLIN/CLAVULANIC ACID [Suspect]
     Active Substance: AMOXICILLIN\CLAVULANIC ACID
     Indication: COVID-19
     Dosage: UNK
     Route: 065
  3. PIPERACILLIN/TAZOBACTAM [Suspect]
     Active Substance: PIPERACILLIN SODIUM\TAZOBACTAM SODIUM
     Indication: COVID-19
     Dosage: UNK
     Route: 065
  4. BINOCRIT [Suspect]
     Active Substance: ERYTHROPOIETIN
     Indication: COVID-19
     Dosage: UNK
     Route: 065
  5. FRAXIPARINE [Suspect]
     Active Substance: NADROPARIN CALCIUM
     Indication: COVID-19
     Dosage: UNK
     Route: 065
  6. ARECHIN [Suspect]
     Active Substance: CHLOROQUINE PHOSPHATE
     Indication: COVID-19
     Dosage: UNK
     Route: 065

REACTIONS (3)
  - Off label use [Unknown]
  - Disease progression [Recovering/Resolving]
  - Drug ineffective for unapproved indication [Recovering/Resolving]
